FAERS Safety Report 10451798 (Version 3)
Quarter: 2014Q3

REPORT INFORMATION
  Report Type: Spontaneous
  Country: US (occurrence: US)
  Receive Date: 20140915
  Receipt Date: 20140923
  Transmission Date: 20150326
  Serious: Yes (Hospitalization)
  Sender: FDA-Public Use
  Company Number: US-UNITED THERAPEUTICS-UNT-2014-006025

PATIENT
  Sex: Male
  Weight: 117.91 kg

DRUGS (3)
  1. REVATIO [Concomitant]
     Active Substance: SILDENAFIL CITRATE
     Indication: PRODUCT USED FOR UNKNOWN INDICATION
  2. REMODULIN [Suspect]
     Active Substance: TREPROSTINIL
     Indication: COR PULMONALE CHRONIC
     Dosage: 0.045 ?G/KG, CONTINUING
     Route: 041
     Dates: start: 20140117
  3. REMODULIN [Suspect]
     Active Substance: TREPROSTINIL
     Dosage: 0.045 ?G/KG, CONTINUING
     Route: 041
     Dates: start: 20140117

REACTIONS (5)
  - Pulmonary hypertension [Unknown]
  - Headache [Unknown]
  - Pain [Unknown]
  - Device related infection [Unknown]
  - Injection site discharge [Unknown]

NARRATIVE: CASE EVENT DATE: 2014
